FAERS Safety Report 23906421 (Version 1)
Quarter: 2024Q2

REPORT INFORMATION
  Report Type: Spontaneous
  Country: US (occurrence: US)
  Receive Date: 20240528
  Receipt Date: 20240528
  Transmission Date: 20240716
  Serious: Yes (Other)
  Sender: FDA-Public Use
  Company Number: US-BIOGEN-2024BI01266150

PATIENT
  Sex: Male

DRUGS (7)
  1. SKYCLARYS [Suspect]
     Active Substance: OMAVELOXOLONE
     Indication: Friedreich^s ataxia
     Route: 050
     Dates: start: 20240507
  2. PULMICORT TURBUHALER [Concomitant]
     Active Substance: BUDESONIDE
     Indication: Product used for unknown indication
     Dosage: 0.25 MG/2 ML
     Route: 050
     Dates: start: 20240401
  3. FLEXERIL [Concomitant]
     Active Substance: CYCLOBENZAPRINE HYDROCHLORIDE
     Indication: Muscle spasms
     Dosage: AS NEEDED
     Route: 050
     Dates: start: 20240401
  4. VOLTAREN [Concomitant]
     Active Substance: DICLOFENAC SODIUM
     Indication: Product used for unknown indication
     Route: 050
     Dates: start: 20240401
  5. PROPECIA [Concomitant]
     Active Substance: FINASTERIDE
     Indication: Product used for unknown indication
     Route: 050
     Dates: start: 20240401
  6. NITROLINGUAL [Concomitant]
     Active Substance: NITROGLYCERIN
     Indication: Chest pain
     Dosage: PLACE 1 SPRAY EVERY 5 MINUTES AS NEEDED
     Route: 050
     Dates: start: 20240401
  7. NITROSTAT [Concomitant]
     Active Substance: NITROGLYCERIN
     Indication: Chest pain
     Dosage: PLACE 1 TABLET EVERY 5 MINUTES AS NEEDED
     Route: 050
     Dates: start: 20240507

REACTIONS (1)
  - Cardiomyopathy [Unknown]
